FAERS Safety Report 10171242 (Version 1)
Quarter: 2014Q2

REPORT INFORMATION
  Report Type: Spontaneous
  Country: GB (occurrence: None)
  Receive Date: 20140512
  Receipt Date: 20140512
  Transmission Date: 20141212
  Serious: Yes (Congenital Anomaly)
  Sender: FDA-Public Use
  Company Number: IMP_07634_2014

PATIENT
  Sex: Male
  Weight: 2.4 kg

DRUGS (2)
  1. SODIUM VALPROATE (SODIUM VALPROATE) [Suspect]
     Indication: MATERNAL EXPOSURE TIMING UNSPECIFIED
     Route: 064
  2. CARBAMAZEPINE (CARBAMAZEPINE) [Suspect]
     Indication: MATERNAL EXPOSURE TIMING UNSPECIFIED
     Route: 064

REACTIONS (14)
  - Foetal exposure during pregnancy [None]
  - Foetal anticonvulsant syndrome [None]
  - Coloboma [None]
  - Heart disease congenital [None]
  - Caesarean section [None]
  - Low birth weight baby [None]
  - Motor developmental delay [None]
  - Congenital hearing disorder [None]
  - Hypertelorism of orbit [None]
  - Brachycephaly [None]
  - Visual acuity reduced [None]
  - Congenital optic nerve anomaly [None]
  - Dacryostenosis congenital [None]
  - Feeding disorder neonatal [None]
